FAERS Safety Report 6293133-9 (Version None)
Quarter: 2009Q3

REPORT INFORMATION
  Report Type: 
  Country: None (occurrence: None)
  Receive Date: 20090731
  Receipt Date: 20090730
  Transmission Date: 20100115
  Serious: Yes (Death)
  Sender: FDA-Public Use
  Company Number: ES-SANOFI-SYNTHELABO-A01200907913

PATIENT
  Age: 62 Year
  Sex: Male

DRUGS (3)
  1. FOLINIC ACID [Concomitant]
     Indication: COLON CANCER
     Dosage: UNK
  2. FLUOROURACIL [Concomitant]
     Indication: COLON CANCER
     Dosage: UNK
  3. ELOXATIN [Suspect]
     Indication: COLON CANCER
     Dosage: UNK
     Route: 041

REACTIONS (2)
  - INTERSTITIAL LUNG DISEASE [None]
  - RESPIRATORY FAILURE [None]
